FAERS Safety Report 5726218-3 (Version None)
Quarter: 2008Q2

REPORT INFORMATION
  Report Type: 
  Country: None (occurrence: None)
  Receive Date: 20080502
  Receipt Date: 20080425
  Transmission Date: 20081010
  Serious: Yes (Other)
  Sender: FDA-Public Use
  Company Number: PHHY2008JP02368

PATIENT
  Age: 80 Year
  Sex: Female

DRUGS (10)
  1. COMTAN [Suspect]
     Indication: PARKINSONIAN GAIT
     Dosage: 100MG/TID
     Route: 048
     Dates: start: 20071218
  2. COMTAN [Suspect]
     Route: 048
     Dates: start: 20080226, end: 20080310
  3. LEVODOPA [Concomitant]
     Indication: PARKINSON'S DISEASE
     Dosage: 450 MG, UNK
     Route: 048
     Dates: start: 20041109
  4. PRAMIPEXOLE DIHYDROCHLORIDE [Concomitant]
     Indication: PARKINSON'S DISEASE
     Dosage: 3 MG, BID
     Route: 048
  5. DOPS [Concomitant]
     Indication: PARKINSON'S DISEASE
     Dosage: 300 MG
     Route: 048
     Dates: start: 20071113
  6. MAGMITT KENEI [Concomitant]
     Indication: CONSTIPATION
     Dosage: 990 MG
     Route: 048
     Dates: start: 20080104
  7. MOBIC [Concomitant]
     Indication: PAIN IN EXTREMITY
     Dosage: 5 MG
     Route: 048
     Dates: start: 20080117, end: 20080201
  8. MUCOSTA [Concomitant]
     Indication: PAIN IN EXTREMITY
     Dosage: 300 MG
     Route: 048
     Dates: start: 20080119, end: 20080201
  9. SELEGILINE HYDROCHLORIDE [Concomitant]
     Indication: PARKINSON'S DISEASE
     Dosage: 2.5 MG
     Route: 048
     Dates: start: 20080226
  10. SELEGILINE HCL [Concomitant]
     Dosage: 2.5 MG/QD
     Dates: start: 20080226

REACTIONS (8)
  - EOSINOPHIL COUNT DECREASED [None]
  - LEUKOPENIA [None]
  - MONOCYTE COUNT DECREASED [None]
  - MYELODYSPLASTIC SYNDROME [None]
  - NAUSEA [None]
  - PAIN IN EXTREMITY [None]
  - PLATELET COUNT DECREASED [None]
  - WHITE BLOOD CELL COUNT DECREASED [None]
